FAERS Safety Report 13305916 (Version 2)
Quarter: 2017Q3

REPORT INFORMATION
  Report Type: Report from Study
  Country: JP (occurrence: JP)
  Receive Date: 20170308
  Receipt Date: 20170707
  Transmission Date: 20171127
  Serious: Yes (Death)
  Sender: FDA-Public Use
  Company Number: JP-INCYTE CORPORATION-2017IN001511

PATIENT

DRUGS (1)
  1. JAKAVI [Suspect]
     Active Substance: RUXOLITINIB
     Indication: POLYCYTHAEMIA VERA
     Dosage: UNKNOWN
     Route: 048
     Dates: start: 201702

REACTIONS (2)
  - Splenomegaly [Unknown]
  - Embolism [Fatal]

NARRATIVE: CASE EVENT DATE: 201702
